FAERS Safety Report 11735067 (Version 1)
Quarter: 2015Q4

REPORT INFORMATION
  Report Type: Spontaneous
  Country: ES (occurrence: ES)
  Receive Date: 20151113
  Receipt Date: 20151113
  Transmission Date: 20160304
  Serious: Yes (Hospitalization)
  Sender: FDA-Public Use
  Company Number: ES-UNICHEM LABORATORIES LIMITED-UCM201511-000864

PATIENT
  Age: 48 Year
  Sex: Female

DRUGS (2)
  1. OLANZAPINE. [Suspect]
     Active Substance: OLANZAPINE
  2. DIVALPROEX SODIUM. [Suspect]
     Active Substance: DIVALPROEX SODIUM

REACTIONS (8)
  - Blood lactic acid increased [Recovered/Resolved]
  - Hyperammonaemia [Unknown]
  - Thrombocytopenia [Unknown]
  - Intentional overdose [Unknown]
  - Hypocalcaemia [Recovered/Resolved]
  - Hypernatraemia [Recovered/Resolved]
  - Toxicity to various agents [Unknown]
  - Hypokalaemia [Unknown]
